FAERS Safety Report 7062931-6 (Version None)
Quarter: 2010Q4

REPORT INFORMATION
  Report Type: 
  Country: None (occurrence: None)
  Receive Date: 20101026
  Receipt Date: 20100401
  Transmission Date: 20110411
  Serious: No
  Sender: FDA-Public Use
  Company Number: US-PFIZER INC-2010042514

PATIENT
  Sex: Female
  Weight: 66.213 kg

DRUGS (9)
  1. LIPITOR [Suspect]
     Indication: BLOOD CHOLESTEROL DECREASED
     Dosage: 40 MG, 1X/DAY
     Route: 048
  2. LIPITOR [Suspect]
     Dosage: 80 MG, 1X/DAY
  3. CENTRUM SILVER [Concomitant]
     Dosage: UNK
  4. ASCORBIC ACID [Concomitant]
     Dosage: UNK
  5. CALCIUM [Concomitant]
     Dosage: 600 MG, UNK
  6. VITAMIN D [Concomitant]
     Dosage: UNK
  7. CHONDROITIN/GLUCOSAMINE [Concomitant]
     Dosage: UNK
  8. ACETYLSALICYLIC ACID [Concomitant]
     Dosage: 81 MG, UNK
  9. FISH OIL [Concomitant]
     Dosage: 1200 MG, UNK

REACTIONS (3)
  - ALOPECIA [None]
  - SKIN ATROPHY [None]
  - VITAMIN D DECREASED [None]
